FAERS Safety Report 10486703 (Version 2)
Quarter: 2014Q4

REPORT INFORMATION
  Report Type: Report from Study
  Country: US (occurrence: US)
  Receive Date: 20141001
  Receipt Date: 20141023
  Transmission Date: 20150528
  Serious: Yes (Death)
  Sender: FDA-Public Use
  Company Number: PHEH2014US019591

PATIENT
  Sex: Female

DRUGS (3)
  1. TOBI [Suspect]
     Active Substance: TOBRAMYCIN
     Indication: PULMONARY FIBROSIS
  2. TOBI [Suspect]
     Active Substance: TOBRAMYCIN
     Indication: SARCOIDOSIS
     Dosage: 300 MG, TWICE A DAY
     Route: 055
  3. TOBI [Suspect]
     Active Substance: TOBRAMYCIN
     Indication: PNEUMONIA PSEUDOMONAL

REACTIONS (1)
  - Death [Fatal]
